FAERS Safety Report 5583073-2 (Version None)
Quarter: 2008Q1

REPORT INFORMATION
  Report Type: 
  Country: None (occurrence: None)
  Receive Date: 20080107
  Receipt Date: 20080102
  Transmission Date: 20080703
  Serious: Yes (Death)
  Sender: FDA-Public Use
  Company Number: B0501650B

PATIENT
  Age: 61 Year
  Sex: Male
  Weight: 107.5 kg

DRUGS (6)
  1. ROSIGLITAZONE [Suspect]
     Dosage: 4MG PER DAY
     Route: 048
     Dates: start: 20030414
  2. METFORMIN HCL [Concomitant]
     Dosage: 2550MG PER DAY
     Route: 048
     Dates: start: 20020401
  3. VOLTAREN [Concomitant]
     Dosage: 75MG PER DAY
     Route: 048
     Dates: start: 20020101
  4. TRENTAL [Concomitant]
     Dosage: 1200MG PER DAY
     Route: 048
     Dates: start: 20030313
  5. ASTRIX [Concomitant]
     Dosage: 100MG PER DAY
     Route: 048
     Dates: start: 20030313
  6. ZOCOR [Concomitant]
     Indication: PROPHYLAXIS
     Dosage: 10MG PER DAY
     Route: 048
     Dates: start: 20030313

REACTIONS (2)
  - CARDIAC DISORDER [None]
  - SUDDEN DEATH [None]
